FAERS Safety Report 8476145-6 (Version None)
Quarter: 2012Q2

REPORT INFORMATION
  Report Type: 
  Country: None (occurrence: None)
  Receive Date: 20120628
  Receipt Date: 20120619
  Transmission Date: 20120825
  Serious: Yes (Other)
  Sender: FDA-Public Use
  Company Number: JP-ELI_LILLY_AND_COMPANY-JP201206006267

PATIENT
  Age: 60 Year
  Sex: Female

DRUGS (3)
  1. GASMOTIN [Concomitant]
  2. EVISTA [Suspect]
     Route: 048
  3. URSO 250 [Concomitant]

REACTIONS (3)
  - BILE DUCT STONE [None]
  - JAUNDICE [None]
  - CONSTIPATION [None]
